FAERS Safety Report 26169211 (Version 1)
Quarter: 2025Q4

REPORT INFORMATION
  Report Type: Spontaneous
  Country: US (occurrence: US)
  Receive Date: 20251217
  Receipt Date: 20251217
  Transmission Date: 20260117
  Serious: Yes (Other)
  Sender: HIKMA
  Company Number: US-HIKMA PHARMACEUTICALS USA INC.-US-H14001-25-12974

PATIENT
  Age: 61 Year
  Sex: Female

DRUGS (1)
  1. CLADRIBINE [Suspect]
     Active Substance: CLADRIBINE
     Indication: Erdheim-Chester disease
     Dosage: 5 MG/M2 FOR DAYS 1-5 EVERY 28 DAYS FOR 3 CYCLES
     Route: 065

REACTIONS (1)
  - Tumour pseudoprogression [Unknown]
